FAERS Safety Report 10589516 (Version 2)
Quarter: 2014Q4

REPORT INFORMATION
  Report Type: Spontaneous
  Country: US (occurrence: None)
  Receive Date: 20141114
  Receipt Date: 20141126
  Transmission Date: 20150529
  Serious: Yes (Other)
  Sender: FDA-Public Use
  Company Number: USW201411-000264

PATIENT
  Age: 72 Year
  Sex: Female
  Weight: 47.17 kg

DRUGS (9)
  1. APOKYN [Suspect]
     Active Substance: APOMORPHINE HYDROCHLORIDE
     Indication: PARKINSON^S DISEASE
     Dosage: 0.6 ML, 2-3 TIMES A DAY (ABDOMEN SITE), SUBCUTANEOUS
     Route: 058
     Dates: start: 20141023, end: 20141031
  2. ATORVASTATIN [Concomitant]
     Active Substance: ATORVASTATIN
  3. OMEPRAZOLE. [Concomitant]
     Active Substance: OMEPRAZOLE
  4. EVISTA (RALOXIFENE) (RALOXIFENE) [Concomitant]
  5. STALEVO (CARBIDOPA, ENTACAPONE, LEVODOPA) [Concomitant]
  6. LEVOTHROID [Concomitant]
     Active Substance: LEVOTHYROXINE SODIUM
  7. ACYCLOVIR. [Concomitant]
     Active Substance: ACYCLOVIR
  8. AMANTIDINE [Concomitant]
     Active Substance: AMANTADINE
  9. MIRAPAX (PRAMIPEXOLE) (PRAMIPEXOLE) [Concomitant]

REACTIONS (1)
  - Vision blurred [None]

NARRATIVE: CASE EVENT DATE: 20141031
